FAERS Safety Report 14179808 (Version 3)
Quarter: 2019Q1

REPORT INFORMATION
  Report Type: Spontaneous
  Country: US (occurrence: US)
  Receive Date: 20171110
  Receipt Date: 20190221
  Transmission Date: 20190417
  Serious: Yes (Other)
  Sender: FDA-Public Use
  Company Number: PHEH2017US036374

PATIENT
  Age: 68 Year
  Sex: Male
  Weight: 96 kg

DRUGS (1)
  1. TASIGNA [Suspect]
     Active Substance: NILOTINIB
     Indication: CHRONIC MYELOID LEUKAEMIA
     Dosage: 400 MG, BID
     Route: 048
     Dates: start: 2011, end: 2016

REACTIONS (25)
  - Aortic valve sclerosis [Unknown]
  - Dry eye [Unknown]
  - Mitral valve incompetence [Unknown]
  - Cerebrovascular accident [Unknown]
  - Tricuspid valve incompetence [Unknown]
  - Cerebral ischaemia [Unknown]
  - Pulmonary fibrosis [Unknown]
  - Anger [Unknown]
  - Deafness [Unknown]
  - Atrial enlargement [Unknown]
  - Aphasia [Unknown]
  - Irritability [Unknown]
  - Pneumoconiosis [Unknown]
  - Dementia [Unknown]
  - Pain [Unknown]
  - Arthritis [Unknown]
  - Hypoxia [Unknown]
  - Dyslipidaemia [Unknown]
  - Essential hypertension [Unknown]
  - Paranoia [Unknown]
  - Insomnia [Unknown]
  - Joint swelling [Unknown]
  - Cognitive disorder [Unknown]
  - Dysprosody [Unknown]
  - Anaemia vitamin B12 deficiency [Unknown]

NARRATIVE: CASE EVENT DATE: 2013
